FAERS Safety Report 24291518 (Version 1)
Quarter: 2024Q3

REPORT INFORMATION
  Report Type: Spontaneous
  Country: US (occurrence: None)
  Receive Date: 20240906
  Receipt Date: 20240906
  Transmission Date: 20241016
  Serious: No
  Sender: DOMPE FARMACEUTICI
  Company Number: US-FARMAPROD-202308-202309-2675

PATIENT
  Sex: Female
  Weight: 60.24 kg

DRUGS (28)
  1. OXERVATE [Suspect]
     Active Substance: CENEGERMIN-BKBJ
     Indication: Neurotrophic keratopathy
     Route: 047
     Dates: start: 20230817
  2. GEMTESA [Concomitant]
     Active Substance: VIBEGRON
  3. ACIPHEX [Concomitant]
     Active Substance: RABEPRAZOLE SODIUM
  4. LUBRIFRESH PM [Concomitant]
     Dosage: 15 %-83 %
  5. RETACRIT [Concomitant]
     Active Substance: EPOETIN ALFA-EPBX
  6. AMLODIPINE BESYLATE [Concomitant]
     Active Substance: AMLODIPINE BESYLATE
  7. ACETAMINOPHEN [Concomitant]
     Active Substance: ACETAMINOPHEN
  8. CLONAZEPAM [Concomitant]
     Active Substance: CLONAZEPAM
  9. TRAVOPROST [Concomitant]
     Active Substance: TRAVOPROST
  10. FIBER THERAPY (CALCIUM POLYCARBOPHIL) [Concomitant]
     Active Substance: CALCIUM POLYCARBOPHIL
  11. FUROSEMIDE [Concomitant]
     Active Substance: FUROSEMIDE
  12. LEVOTHYROXINE SODIUM [Concomitant]
     Active Substance: LEVOTHYROXINE SODIUM
  13. SODIUM BICARBONATE [Concomitant]
     Active Substance: SODIUM BICARBONATE
  14. NITROFURANTOIN MONOHYDRATE MACROCRYSTALS [Concomitant]
     Active Substance: NITROFURANTOIN\NITROFURANTOIN MONOHYDRATE
  15. CIPROFLOXACIN HYDROCHLORIDE [Concomitant]
     Active Substance: CIPROFLOXACIN HYDROCHLORIDE
  16. RABEPRAZOLE SODIUM [Concomitant]
     Active Substance: RABEPRAZOLE SODIUM
  17. FLURBIPROFEN SODIUM [Concomitant]
     Active Substance: FLURBIPROFEN SODIUM
  18. CROMOLYN SODIUM [Concomitant]
     Active Substance: CROMOLYN SODIUM
  19. LINZESS [Concomitant]
     Active Substance: LINACLOTIDE
  20. LISINOPRIL [Concomitant]
     Active Substance: LISINOPRIL
  21. DICLOFENAC SODIUM [Concomitant]
     Active Substance: DICLOFENAC\DICLOFENAC SODIUM
  22. CIPROFLOXACIN HYDROCHLORIDE [Concomitant]
     Active Substance: CIPROFLOXACIN HYDROCHLORIDE
  23. ERYTHROMYCIN [Concomitant]
     Active Substance: ERYTHROMYCIN
  24. FLUOROMETHOLONE [Concomitant]
     Active Substance: FLUOROMETHOLONE
  25. AMMONIUM LACTATE [Concomitant]
     Active Substance: AMMONIUM LACTATE
  26. ALBUTEROL SULFATE [Concomitant]
     Active Substance: ALBUTEROL SULFATE
     Dosage: HYDROFLUOROALKANE. AEROSOL WITH ADAPTER.
  27. TRIAMCINOLONE ACETONIDE [Concomitant]
     Active Substance: TRIAMCINOLONE ACETONIDE
  28. BREO ELLIPTA [Concomitant]
     Active Substance: FLUTICASONE FUROATE\VILANTEROL TRIFENATATE
     Dosage: 100-25MCG BLISTER WITH DEVICE.

REACTIONS (1)
  - Off label use [Unknown]
